FAERS Safety Report 9356367 (Version 1)
Quarter: 2013Q2

REPORT INFORMATION
  Report Type: Report from Study
  Country: US (occurrence: US)
  Receive Date: 20130619
  Receipt Date: 20130619
  Transmission Date: 20140414
  Serious: Yes (Other)
  Sender: FDA-Public Use
  Company Number: US-ROXANE LABORATORIES, INC.-2013-BI-17372GD

PATIENT
  Age: 39 Year
  Sex: Female

DRUGS (4)
  1. PREDNISONE [Suspect]
     Indication: UVEITIS
     Dosage: 7.5 MG
     Route: 048
  2. PREDNISONE [Suspect]
     Dosage: 15 MG
     Route: 048
  3. PREDNISONE [Suspect]
     Dosage: 100 MG
     Route: 048
  4. CYCLOSPORINE [Concomitant]
     Indication: UVEITIS
     Dates: start: 2006

REACTIONS (7)
  - Osteonecrosis [Unknown]
  - Arthralgia [Unknown]
  - Pain in extremity [Unknown]
  - Headache [Unknown]
  - Deafness [Unknown]
  - Vitiligo [Unknown]
  - Vogt-Koyanagi-Harada syndrome [Unknown]
